FAERS Safety Report 4513957-5 (Version None)
Quarter: 2004Q4

REPORT INFORMATION
  Report Type: 
  Country: None (occurrence: None)
  Receive Date: 20041130
  Receipt Date: 20041008
  Transmission Date: 20050328
  Serious: No
  Sender: FDA-Public Use
  Company Number: US-GLAXOSMITHKLINE-A0529089A

PATIENT
  Age: 42 Year
  Sex: Female

DRUGS (5)
  1. WELLBUTRIN [Suspect]
     Indication: DEPRESSION
     Dosage: 150MG PER DAY
     Route: 048
     Dates: start: 20041001
  2. ETHANOL [Suspect]
  3. ACTOS [Concomitant]
  4. ACCUPRIL [Concomitant]
  5. XANAX [Concomitant]

REACTIONS (1)
  - NIGHTMARE [None]
